FAERS Safety Report 8803087 (Version 1)
Quarter: 2012Q4

REPORT INFORMATION
  Report Type: 
  Country: US (occurrence: US)
  Receive Date: 20120924
  Receipt Date: 20120924
  Transmission Date: 20130627
  Serious: Yes (Life-Threatening, Other)
  Sender: FDA-Public Use
  Company Number: US-PURDUE-USA-2012-0092295

PATIENT
  Age: 32 Year
  Sex: Female
  Weight: 85.71 kg

DRUGS (5)
  1. BUTRANS [Suspect]
     Indication: PAIN
     Dosage: 5 mcg, q1h
     Route: 062
  2. BUTRANS [Suspect]
     Dosage: 10 mcg, q1h
     Route: 062
     Dates: start: 20120709, end: 20120730
  3. GABAPENTIN [Concomitant]
  4. PLAQUENIL                          /00072602/ [Concomitant]
  5. AMLODIPINE [Concomitant]

REACTIONS (4)
  - Suicidal ideation [Recovered/Resolved]
  - Paranoia [Unknown]
  - Anxiety [Unknown]
  - Inadequate analgesia [Unknown]
